FAERS Safety Report 23094570 (Version 4)
Quarter: 2024Q1

REPORT INFORMATION
  Report Type: Report from Study
  Country: US (occurrence: US)
  Receive Date: 20231023
  Receipt Date: 20240105
  Transmission Date: 20240410
  Serious: No
  Sender: FDA-Public Use
  Company Number: US-002147023-NVSC2023US224578

PATIENT
  Sex: Female

DRUGS (1)
  1. KESIMPTA [Suspect]
     Active Substance: OFATUMUMAB
     Indication: Multiple sclerosis
     Dosage: 20 MG, QMO, (ONCE A MONTH)
     Route: 058

REACTIONS (5)
  - Pain in extremity [Recovering/Resolving]
  - Injection site bruising [Unknown]
  - Wrong technique in product usage process [Recovering/Resolving]
  - Device difficult to use [Recovering/Resolving]
  - Accidental exposure to product [Recovering/Resolving]
